FAERS Safety Report 11753658 (Version 1)
Quarter: 2015Q4

REPORT INFORMATION
  Report Type: Spontaneous
  Country: US (occurrence: US)
  Receive Date: 20151119
  Receipt Date: 20151119
  Transmission Date: 20160304
  Serious: No
  Sender: FDA-Public Use
  Company Number: US-PFIZER INC-2015382076

PATIENT
  Age: 54 Year
  Sex: Male

DRUGS (4)
  1. PHENYTOIN SODIUM. [Suspect]
     Active Substance: PHENYTOIN SODIUM
     Dosage: FOUR OF 100 MG
     Dates: start: 2015, end: 2015
  2. PHENYTOIN SODIUM. [Suspect]
     Active Substance: PHENYTOIN SODIUM
     Dosage: 100 MG, 2X/DAY
     Dates: start: 2015, end: 2015
  3. PHENYTOIN SODIUM. [Suspect]
     Active Substance: PHENYTOIN SODIUM
     Indication: SEIZURE
     Dosage: THREE 100 MG
     Dates: start: 20150913, end: 2015
  4. ASPIRIN /00002701/ [Concomitant]
     Active Substance: ASPIRIN
     Dosage: 325 MG, DAILY (EVERY DAY)

REACTIONS (2)
  - Anticonvulsant drug level below therapeutic [Unknown]
  - Drug ineffective [Unknown]
